FAERS Safety Report 24420406 (Version 1)
Quarter: 2024Q4

REPORT INFORMATION
  Report Type: Spontaneous
  Country: RO (occurrence: RO)
  Receive Date: 20241010
  Receipt Date: 20241010
  Transmission Date: 20250115
  Serious: Yes (Life-Threatening)
  Sender: NOVO NORDISK
  Company Number: RO-NOVOPROD-1292379

PATIENT
  Age: 48 Year
  Sex: Female

DRUGS (1)
  1. OZEMPIC [Suspect]
     Active Substance: SEMAGLUTIDE
     Indication: Type 2 diabetes mellitus
     Dosage: UNK
     Dates: start: 2021

REACTIONS (1)
  - Impaired gastric emptying [Unknown]
